FAERS Safety Report 6274109-4 (Version None)
Quarter: 2009Q3

REPORT INFORMATION
  Report Type: 
  Country: None (occurrence: None)
  Receive Date: 20090720
  Receipt Date: 20090709
  Transmission Date: 20100115
  Serious: Yes (Hospitalization)
  Sender: FDA-Public Use
  Company Number: PHHY2009IT17716

PATIENT
  Sex: Male

DRUGS (6)
  1. TOLEP [Suspect]
     Indication: BIPOLAR DISORDER
     Dosage: 1200MG/DAY
     Route: 048
     Dates: start: 20070301, end: 20090325
  2. RISPERDAL [Concomitant]
     Dosage: 4 MG
     Route: 048
  3. TAVOR [Concomitant]
     Dosage: 5 MG
     Route: 048
  4. AMLODIPINE [Concomitant]
     Dosage: 10 MG, UNK
     Route: 048
  5. RAMIPRIL [Concomitant]
     Dosage: 10 MG, UNK
     Route: 048
  6. LANSOX [Concomitant]
     Dosage: 30 MG, UNK
     Route: 048

REACTIONS (5)
  - GRAND MAL CONVULSION [None]
  - HYPERPYREXIA [None]
  - HYPONATRAEMIA [None]
  - PETIT MAL EPILEPSY [None]
  - SOPOR [None]
